FAERS Safety Report 6818196-0 (Version None)
Quarter: 2010Q3

REPORT INFORMATION
  Report Type: 
  Country: None (occurrence: None)
  Receive Date: 20100706
  Receipt Date: 20060921
  Transmission Date: 20110219
  Serious: No
  Sender: FDA-Public Use
  Company Number: US-PFIZER INC-2007057112

PATIENT
  Sex: Female

DRUGS (7)
  1. ZITHROMAX [Suspect]
     Dates: start: 20060920
  2. KEFLEX [Suspect]
     Dates: end: 20060920
  3. CARAFATE [Concomitant]
  4. CIMETIDINE [Concomitant]
  5. VITAMIN E [Concomitant]
  6. CALCIUM CARBONATE [Concomitant]
  7. MAGNESIUM [Concomitant]

REACTIONS (3)
  - BALANCE DISORDER [None]
  - FEELING ABNORMAL [None]
  - VITREOUS FLOATERS [None]
